FAERS Safety Report 6614494-4 (Version None)
Quarter: 2010Q1

REPORT INFORMATION
  Report Type: 
  Country: None (occurrence: None)
  Receive Date: 20100304
  Receipt Date: 20100224
  Transmission Date: 20100710
  Serious: Yes (Other)
  Sender: FDA-Public Use
  Company Number: US-GENENTECH-284864

PATIENT
  Age: 84 Year
  Sex: Male

DRUGS (3)
  1. LUCENTIS [Suspect]
     Indication: CHOROIDAL NEOVASCULARISATION
     Dosage: UNK
     Route: 031
  2. LUCENTIS [Suspect]
     Dosage: UNK
     Route: 031
  3. VERTEPORFIN [Suspect]
     Indication: DRUG USE FOR UNKNOWN INDICATION

REACTIONS (5)
  - MACULAR OEDEMA [None]
  - POLYPOIDAL CHOROIDAL VASCULOPATHY [None]
  - RETINAL EXUDATES [None]
  - RETINAL OEDEMA [None]
  - VISUAL ACUITY REDUCED [None]
